FAERS Safety Report 7007110-3 (Version None)
Quarter: 2010Q3

REPORT INFORMATION
  Report Type: 
  Country: None (occurrence: None)
  Receive Date: 20100913
  Receipt Date: 20100907
  Transmission Date: 20110219
  Serious: Yes (Hospitalization)
  Sender: FDA-Public Use
  Company Number: 2009-196587-NL

PATIENT
  Age: 36 Year
  Sex: Female
  Weight: 83.0083 kg

DRUGS (2)
  1. NUVARING [Suspect]
     Indication: CONTRACEPTION
     Dosage: 1 DF
     Dates: start: 20060901, end: 20070601
  2. ALBUTEROL (CON.) [Concomitant]

REACTIONS (15)
  - ABDOMINAL PAIN [None]
  - ABORTION INDUCED [None]
  - ASTHENIA [None]
  - ATELECTASIS [None]
  - CAESAREAN SECTION [None]
  - DIZZINESS [None]
  - DRUG EXPOSURE BEFORE PREGNANCY [None]
  - FLANK PAIN [None]
  - IRON DEFICIENCY ANAEMIA [None]
  - MUSCULOSKELETAL PAIN [None]
  - NAUSEA [None]
  - RENAL VEIN THROMBOSIS [None]
  - RETAINED PRODUCTS OF CONCEPTION [None]
  - THIRST [None]
  - WEIGHT DECREASED [None]
